FAERS Safety Report 7207050-0 (Version None)
Quarter: 2011Q1

REPORT INFORMATION
  Report Type: 
  Country: None (occurrence: None)
  Receive Date: 20110103
  Receipt Date: 20101222
  Transmission Date: 20110831
  Serious: Yes (Life-Threatening)
  Sender: FDA-Public Use
  Company Number: B0690786A

PATIENT
  Sex: Female
  Weight: 48 kg

DRUGS (9)
  1. CEFMETAZOLE SODIUM [Concomitant]
     Route: 042
  2. FUROSEMIDE [Concomitant]
     Route: 042
  3. UNKNOWN [Concomitant]
     Route: 042
  4. PENTAZOCINE LACTATE [Concomitant]
  5. VITAMEDIN [Concomitant]
     Route: 042
  6. VEEN-D [Concomitant]
     Route: 042
  7. ARIXTRA [Suspect]
     Indication: THROMBOSIS PROPHYLAXIS
     Dosage: 2.5MG PER DAY
     Route: 058
     Dates: start: 20100909, end: 20100909
  8. SOLDEM 3AG [Concomitant]
     Route: 042
  9. PANTOL [Concomitant]

REACTIONS (3)
  - PERITONITIS [None]
  - MECHANICAL ILEUS [None]
  - ENDOTOXAEMIA [None]
